FAERS Safety Report 9431252 (Version 1)
Quarter: 2013Q3

REPORT INFORMATION
  Report Type: Spontaneous
  Country: US (occurrence: US)
  Receive Date: 20130730
  Receipt Date: 20130730
  Transmission Date: 20140515
  Serious: Yes (Other)
  Sender: FDA-Public Use
  Company Number: US-JNJFOC-20130712840

PATIENT
  Sex: Female

DRUGS (5)
  1. DOXORUBICIN [Suspect]
     Indication: BREAST CANCER
     Dosage: DAY 1, EVERY 14 DAYS X 4 CYCLES
     Route: 042
  2. CYCLOPHOSPHAMIDE [Suspect]
     Indication: BREAST CANCER
     Dosage: DAY 1, EVERY 14 DAYS X 4 CYCLES
     Route: 065
  3. CARBOPLATIN [Suspect]
     Indication: BREAST CANCER
     Dosage: DAY 1
     Route: 065
  4. ALBUMIN [Suspect]
     Indication: BREAST CANCER
     Dosage: DAY 1, 8 AND 15 EVERY 28 DAYS X 4 CYCLES
     Route: 065
  5. BEVACIZUMAB [Suspect]
     Indication: BREAST CANCER
     Dosage: FOR THE FIRST 6 CYCLES
     Route: 065

REACTIONS (5)
  - Adverse drug reaction [Unknown]
  - Neutropenia [Unknown]
  - Febrile neutropenia [Unknown]
  - Thrombocytopenia [Unknown]
  - Anaemia [Unknown]
